FAERS Safety Report 6609472-5 (Version None)
Quarter: 2010Q1

REPORT INFORMATION
  Report Type: 
  Country: None (occurrence: None)
  Receive Date: 20100224
  Receipt Date: 20100208
  Transmission Date: 20100710
  Serious: Yes (Hospitalization)
  Sender: FDA-Public Use
  Company Number: DSA_42632_2010

PATIENT
  Age: 70 Year
  Sex: Male

DRUGS (5)
  1. DILTIAZEM HYDROCHLORIDE [Suspect]
     Indication: DRUG USE FOR UNKNOWN INDICATION
     Dosage: (DF ORAL)
     Route: 048
     Dates: start: 20091217, end: 20091224
  2. METFORMIN HCL [Concomitant]
  3. SIMVASTATIN [Concomitant]
  4. CHONDROSULF [Concomitant]
  5. PARACETAMOL [Concomitant]

REACTIONS (4)
  - PRURITUS [None]
  - RASH MACULAR [None]
  - RASH VESICULAR [None]
  - SKIN EXFOLIATION [None]
